FAERS Safety Report 9149675 (Version 1)
Quarter: 2013Q1

REPORT INFORMATION
  Report Type: Spontaneous
  Country: CA (occurrence: CA)
  Receive Date: 20130308
  Receipt Date: 20130308
  Transmission Date: 20140127
  Serious: Yes (Other)
  Sender: FDA-Public Use
  Company Number: PHHY2013CA021382

PATIENT
  Sex: Female

DRUGS (6)
  1. HEPARIN [Suspect]
     Dosage: 2000 U, UNK
     Route: 042
  2. HEPARIN [Suspect]
     Dosage: 3000 UNK, UNK
     Route: 042
  3. CLOPIDOGREL [Concomitant]
     Dosage: 75 MG DAILY
  4. ASPIRIN [Concomitant]
     Dosage: 81 MG, UNK
  5. ABCIXIMAB [Concomitant]
  6. ALTEPLASE [Concomitant]

REACTIONS (4)
  - Heparin-induced thrombocytopenia [Recovered/Resolved]
  - Thrombosis [Recovered/Resolved]
  - Hemiparesis [Recovered/Resolved]
  - Hypoaesthesia [Recovered/Resolved]
